FAERS Safety Report 8529791-5 (Version None)
Quarter: 2012Q3

REPORT INFORMATION
  Report Type: 
  Country: None (occurrence: None)
  Receive Date: 20120723
  Receipt Date: 20120715
  Transmission Date: 20120928
  Serious: Yes (Other)
  Sender: FDA-Public Use
  Company Number: IL-JNJFOC-20120707677

PATIENT
  Age: 10 Year
  Sex: Male

DRUGS (3)
  1. REMICADE [Suspect]
     Dosage: 3RD INFUSION, 250 CC BAG
     Route: 042
  2. REMICADE [Suspect]
     Indication: CROHN'S DISEASE
     Route: 042
  3. HYDROCORTISONE [Concomitant]
     Indication: PREMEDICATION
     Route: 065

REACTIONS (4)
  - INFUSION RELATED REACTION [None]
  - SWELLING FACE [None]
  - RESPIRATORY TRACT OEDEMA [None]
  - DYSPNOEA [None]
